FAERS Safety Report 5164362-2 (Version None)
Quarter: 2006Q4

REPORT INFORMATION
  Report Type: 
  Country: None (occurrence: None)
  Receive Date: 20061129
  Receipt Date: 20061129
  Transmission Date: 20070319
  Serious: Yes (Hospitalization)
  Sender: FDA-Public Use
  Company Number: None

PATIENT
  Age: 69 Year
  Sex: Male

DRUGS (6)
  1. ATORVASTATIN [Suspect]
     Indication: HYPERLIPIDAEMIA
     Dosage: 20 MG  DAILY  PO
     Route: 048
  2. CLOPIDROGEL [Concomitant]
  3. VALSARTAN [Concomitant]
  4. MAALOX E.S. [Concomitant]
  5. ACETAMINOPHEN [Concomitant]
  6. LORAZEPAM [Concomitant]

REACTIONS (2)
  - CHILLS [None]
  - PYREXIA [None]
